FAERS Safety Report 5108831-X (Version None)
Quarter: 2006Q3

REPORT INFORMATION
  Report Type: 
  Country: None (occurrence: None)
  Receive Date: 20060920
  Receipt Date: 20060911
  Transmission Date: 20061208
  Serious: Yes (Hospitalization)
  Sender: FDA-Public Use
  Company Number: DK-JNJFOC-20060902744

PATIENT
  Age: 19 Year
  Sex: Female
  Weight: 61.4 kg

DRUGS (3)
  1. REMICADE [Suspect]
     Route: 042
  2. REMICADE [Suspect]
     Indication: CROHN'S DISEASE
     Route: 042
  3. IMUREL [Concomitant]
     Route: 065

REACTIONS (4)
  - ARTHRALGIA [None]
  - ARTHRITIS [None]
  - INFECTION [None]
  - MYALGIA [None]
